FAERS Safety Report 17098825 (Version 3)
Quarter: 2020Q3

REPORT INFORMATION
  Report Type: Spontaneous
  Country: US (occurrence: US)
  Receive Date: 20191202
  Receipt Date: 20200814
  Transmission Date: 20201102
  Serious: No
  Sender: FDA-Public Use
  Company Number: US-PFIZER INC-2019513481

PATIENT
  Age: 75 Year
  Sex: Female
  Weight: 65.31 kg

DRUGS (3)
  1. IBRANCE [Suspect]
     Active Substance: PALBOCICLIB
     Indication: BREAST CANCER FEMALE
     Dosage: 125 MG, CYCLIC (125MG QD (ONCE A DAY) X 21 DAYS Q (EVERY) 28DAYS)
     Dates: start: 20190622, end: 2019
  2. EXEMESTANE. [Concomitant]
     Active Substance: EXEMESTANE
     Dosage: 25 MG, 1X/DAY
     Dates: start: 201712
  3. IBRANCE [Suspect]
     Active Substance: PALBOCICLIB
     Dosage: 125 MG, 1X/DAY
     Dates: start: 20190704

REACTIONS (2)
  - Confusional state [Unknown]
  - Faeces soft [Unknown]

NARRATIVE: CASE EVENT DATE: 20190704
